FAERS Safety Report 6599546-X (Version None)
Quarter: 2010Q1

REPORT INFORMATION
  Report Type: 
  Country: None (occurrence: None)
  Receive Date: 20100224
  Receipt Date: 20100216
  Transmission Date: 20100710
  Serious: Yes (Hospitalization)
  Sender: FDA-Public Use
  Company Number: US-ROCHE-681941

PATIENT
  Sex: Male
  Weight: 80.9 kg

DRUGS (14)
  1. TOCILIZUMAB [Suspect]
     Indication: RHEUMATOID ARTHRITIS
     Dosage: DATE OF LAST DOSE PRIOR TO SA: 5 JAN 2010; FORM: VIALS, DOSE: 8 MG/KG
     Route: 042
     Dates: start: 20091209
  2. PREDNISONE [Concomitant]
     Dates: start: 20091229
  3. ARAVA [Concomitant]
     Dates: start: 20080101
  4. ACIPHEX [Concomitant]
     Dates: start: 20081201
  5. PAXIL [Concomitant]
     Dates: start: 20090301
  6. VALTREX [Concomitant]
     Dates: start: 20091001
  7. RECLAST [Concomitant]
     Dates: start: 20091015
  8. HYDROCHLOROTHIAZIDE [Concomitant]
     Dates: start: 20091204
  9. CRESTOR [Concomitant]
     Dates: start: 20091222
  10. VITAMINE D [Concomitant]
     Dates: start: 20040101
  11. CALCIUM CITRATE [Concomitant]
     Dates: start: 20040101
  12. TESTOSTERONE [Concomitant]
     Dates: start: 20090601
  13. LEVITRA [Concomitant]
     Dosage: AS NECESSARY
     Dates: start: 20051101
  14. OPANA ER [Concomitant]
     Dates: start: 20080501

REACTIONS (1)
  - ARTHRITIS INFECTIVE [None]
